FAERS Safety Report 4409923-0 (Version None)
Quarter: 2004Q3

REPORT INFORMATION
  Report Type: 
  Country: None (occurrence: None)
  Receive Date: 20040728
  Receipt Date: 20040625
  Transmission Date: 20050211
  Serious: Yes (Other)
  Sender: FDA-Public Use
  Company Number: JP-GLAXOSMITHKLINE-B0337265A

PATIENT
  Age: 71 Year
  Sex: Female
  Weight: 58 kg

DRUGS (3)
  1. ZANTAC [Suspect]
     Indication: GASTRIC ULCER
     Dosage: 150MG TWICE PER DAY
     Route: 048
     Dates: start: 20020917, end: 20040608
  2. SERENAL [Concomitant]
     Indication: STRESS SYMPTOMS
     Dosage: 5MG TWICE PER DAY
     Route: 048
     Dates: start: 20020414
  3. SHAKUYAKU-KANZO-TO [Concomitant]
     Indication: MUSCLE CRAMP
     Dosage: 2.5G THREE TIMES PER DAY
     Route: 048
     Dates: start: 20020930

REACTIONS (4)
  - BONE MARROW DEPRESSION [None]
  - DYSPNOEA [None]
  - HAEMOGLOBIN DECREASED [None]
  - RED BLOOD CELL COUNT DECREASED [None]
